FAERS Safety Report 9382513 (Version 1)
Quarter: 2013Q3

REPORT INFORMATION
  Report Type: Spontaneous
  Country: US (occurrence: US)
  Receive Date: 20130703
  Receipt Date: 20130703
  Transmission Date: 20140515
  Serious: Yes (Death)
  Sender: FDA-Public Use
  Company Number: US-GLAXOSMITHKLINE-A1028604A

PATIENT
  Age: 19 Year
  Sex: Male

DRUGS (12)
  1. VOTRIENT [Suspect]
     Indication: NEOPLASM MALIGNANT
     Dosage: 400MG SEE DOSAGE TEXT
     Dates: start: 20130515
  2. ALBUTEROL [Concomitant]
  3. PERCOCET [Concomitant]
  4. SENNA [Concomitant]
  5. TYLENOL # 3 [Concomitant]
  6. DEXAMETHASONE [Concomitant]
  7. LEVOFLOXACIN [Concomitant]
  8. BACTRIM [Concomitant]
  9. ZOFRAN [Concomitant]
  10. PRILOSEC [Concomitant]
  11. FENTANYL [Concomitant]
  12. VITAMIN D [Concomitant]

REACTIONS (1)
  - Death [Fatal]
